FAERS Safety Report 6526213-0 (Version None)
Quarter: 2009Q4

REPORT INFORMATION
  Report Type: 
  Country: None (occurrence: None)
  Receive Date: 20091228
  Receipt Date: 20091218
  Transmission Date: 20100525
  Serious: Yes (Disabling, Other)
  Sender: FDA-Public Use
  Company Number: 233874J09USA

PATIENT
  Age: 53 Year
  Sex: Female

DRUGS (2)
  1. REBIF [Suspect]
     Indication: MULTIPLE SCLEROSIS
     Dosage: 44 MCG, 3 IN 1 WEEKS, SUBCUTANEOUS
     Route: 058
     Dates: start: 20090302
  2. TYLENOL [Concomitant]

REACTIONS (7)
  - ADNEXA UTERI PAIN [None]
  - CONSTIPATION [None]
  - FEELING ABNORMAL [None]
  - HAEMORRHOIDAL HAEMORRHAGE [None]
  - LOSS OF CONSCIOUSNESS [None]
  - MICTURITION URGENCY [None]
  - NAUSEA [None]
